FAERS Safety Report 13803410 (Version 1)
Quarter: 2017Q3

REPORT INFORMATION
  Report Type: Spontaneous
  Country: TR (occurrence: TR)
  Receive Date: 20170728
  Receipt Date: 20170728
  Transmission Date: 20171127
  Serious: Yes (Hospitalization, Other)
  Sender: FDA-Public Use
  Company Number: TR-ASTELLAS-2017US029481

PATIENT
  Age: 13 Year
  Sex: Male

DRUGS (10)
  1. BACTRIM [Concomitant]
     Active Substance: SULFAMETHOXAZOLE\TRIMETHOPRIM
     Indication: INFECTION PROPHYLAXIS
     Dosage: UNK UNK, UNKNOWN FREQ.
     Route: 065
  2. TACROLIMUS. [Suspect]
     Active Substance: TACROLIMUS
     Indication: PROPHYLAXIS AGAINST GRAFT VERSUS HOST DISEASE
     Dosage: 0.01 MG/KG, ONCE DAILY
     Route: 065
  3. GANCICLOVIR. [Suspect]
     Active Substance: GANCICLOVIR
     Indication: PNEUMONIA CYTOMEGALOVIRAL
     Route: 065
  4. TACROLIMUS. [Suspect]
     Active Substance: TACROLIMUS
     Dosage: UNK, UNKNOWN FREQ.
     Route: 065
  5. METHOTREXATE. [Concomitant]
     Active Substance: METHOTREXATE
     Indication: PROPHYLAXIS AGAINST GRAFT VERSUS HOST DISEASE
     Dosage: UNK UNK, UNKNOWN FREQ.
     Route: 065
  6. BUSULFAN. [Concomitant]
     Active Substance: BUSULFAN
     Indication: BONE MARROW CONDITIONING REGIMEN
     Dosage: UNK UNK, UNKNOWN FREQ.
     Route: 065
  7. CYCLOPHOSPHAMIDE. [Concomitant]
     Active Substance: CYCLOPHOSPHAMIDE
     Indication: BONE MARROW CONDITIONING REGIMEN
     Dosage: UNK UNK, UNKNOWN FREQ.
     Route: 065
  8. GANCICLOVIR. [Suspect]
     Active Substance: GANCICLOVIR
     Indication: CYTOMEGALOVIRUS VIRAEMIA
     Dosage: UNK, UNKNOWN FREQ.
     Route: 065
  9. FLUCONAZOLE. [Concomitant]
     Active Substance: FLUCONAZOLE
     Indication: INFECTION PROPHYLAXIS
     Dosage: UNK UNK, UNKNOWN FREQ.
     Route: 065
  10. ACLOVIR [Concomitant]
     Indication: INFECTION PROPHYLAXIS
     Dosage: UNK UNK, UNKNOWN FREQ.
     Route: 065

REACTIONS (6)
  - Diplopia [Unknown]
  - Toxicity to various agents [Unknown]
  - Cytomegalovirus viraemia [Unknown]
  - Diplopia [Recovered/Resolved]
  - Pneumonia cytomegaloviral [Unknown]
  - Off label use [Unknown]
